FAERS Safety Report 12677185 (Version 1)
Quarter: 2016Q3

REPORT INFORMATION
  Report Type: Spontaneous
  Country: US (occurrence: US)
  Receive Date: 20160823
  Receipt Date: 20160823
  Transmission Date: 20161109
  Serious: No
  Sender: FDA-Public Use
  Company Number: US-PFIZER INC-2016396429

PATIENT
  Age: 79 Year
  Sex: Female
  Weight: 49.89 kg

DRUGS (2)
  1. IBRANCE [Suspect]
     Active Substance: PALBOCICLIB
     Indication: BREAST CANCER
     Dosage: 100 MG, CYCLIC (1 CAPSULE DAILY FOR 21 DAYS ON, THEN 7 DAYS OFF, REPEAT)
     Route: 048
     Dates: start: 201608
  2. FASLODEX [Concomitant]
     Active Substance: FULVESTRANT
     Dosage: UNK

REACTIONS (2)
  - Haemoglobin decreased [Unknown]
  - Weight increased [Unknown]
